FAERS Safety Report 24112612 (Version 1)
Quarter: 2024Q3

REPORT INFORMATION
  Report Type: Spontaneous
  Country: DE (occurrence: None)
  Receive Date: 20240719
  Receipt Date: 20240719
  Transmission Date: 20241017
  Serious: Yes (Other)
  Sender: ASTRAZENECA
  Company Number: 2024A160724

PATIENT
  Sex: Female

DRUGS (2)
  1. KOSELUGO [Suspect]
     Active Substance: SELUMETINIB
     Indication: Glioma
     Route: 048
  2. DABRAFENIB [Concomitant]
     Active Substance: DABRAFENIB

REACTIONS (1)
  - Metastases to eye [Unknown]
